FAERS Safety Report 23405066 (Version 1)
Quarter: 2024Q1

REPORT INFORMATION
  Report Type: Spontaneous
  Country: US (occurrence: None)
  Receive Date: 20240112
  Receipt Date: 20240112
  Transmission Date: 20240409
  Serious: Yes (Hospitalization)
  Sender: FDA-Public Use
  Company Number: None

PATIENT
  Age: 77 Year
  Sex: Female

DRUGS (3)
  1. TYMLOS [Suspect]
     Active Substance: ABALOPARATIDE
     Indication: Osteoporotic fracture
     Dosage: OTHER STRENGTH : 3120/1.56 UG/ML;?FREQUENCY : DAILY;?
     Route: 058
  2. TYMLOS [Suspect]
     Active Substance: ABALOPARATIDE
     Indication: Senile osteoporosis
  3. TYMLOS [Suspect]
     Active Substance: ABALOPARATIDE
     Indication: Pathological fracture

REACTIONS (2)
  - Hypertensive crisis [None]
  - Intentional dose omission [None]
